FAERS Safety Report 13338511 (Version 2)
Quarter: 2017Q1

REPORT INFORMATION
  Report Type: Spontaneous
  Country: IQ (occurrence: IQ)
  Receive Date: 20170315
  Receipt Date: 20170321
  Transmission Date: 20170428
  Serious: Yes (Hospitalization, Other)
  Sender: FDA-Public Use
  Company Number: IQ-JNJFOC-20170307122

PATIENT
  Age: 43 Year
  Sex: Male
  Weight: 135 kg

DRUGS (5)
  1. REMICADE [Suspect]
     Active Substance: INFLIXIMAB
     Indication: RHEUMATOID ARTHRITIS
     Dosage: APPROXIMATE TOTAL INFUSIONS: 6
     Route: 042
     Dates: start: 201604, end: 201612
  2. REMICADE [Suspect]
     Active Substance: INFLIXIMAB
     Indication: ANKYLOSING SPONDYLITIS
     Dosage: APPROXIMATE TOTAL INFUSIONS: 6
     Route: 042
     Dates: start: 201604, end: 201612
  3. REMICADE [Suspect]
     Active Substance: INFLIXIMAB
     Indication: ANKYLOSING SPONDYLITIS
     Dosage: 3MG/KG
     Route: 042
  4. REMICADE [Suspect]
     Active Substance: INFLIXIMAB
     Indication: RHEUMATOID ARTHRITIS
     Dosage: 3MG/KG
     Route: 042
  5. METHOTREXATE. [Suspect]
     Active Substance: METHOTREXATE
     Indication: ANKYLOSING SPONDYLITIS
     Route: 065
     Dates: start: 201604

REACTIONS (18)
  - Staphylococcus test positive [Unknown]
  - Chest X-ray abnormal [Unknown]
  - Muscular weakness [Unknown]
  - Hyperhidrosis [Recovered/Resolved]
  - Sleep disorder [Recovered/Resolved]
  - Cholelithiasis [Unknown]
  - Red blood cell sedimentation rate increased [Unknown]
  - Pyrexia [Recovered/Resolved]
  - Neutrophilia [Recovered/Resolved]
  - Antinuclear antibody positive [Unknown]
  - Alanine aminotransferase increased [Unknown]
  - White blood cell count increased [Unknown]
  - Aspartate aminotransferase increased [Unknown]
  - Joint swelling [Recovered/Resolved]
  - Dyspnoea exertional [Unknown]
  - Fatigue [Recovered/Resolved]
  - Blood creatine phosphokinase increased [Unknown]
  - Blood lactate dehydrogenase increased [Unknown]

NARRATIVE: CASE EVENT DATE: 201612
